FAERS Safety Report 20009314 (Version 2)
Quarter: 2021Q4

REPORT INFORMATION
  Report Type: Report from Study
  Country: GB (occurrence: GB)
  Receive Date: 20211029
  Receipt Date: 20211110
  Transmission Date: 20220303
  Serious: Yes (Other)
  Sender: FDA-Public Use
  Company Number: GB-CHIESI-2021CHF05234

PATIENT
  Age: 73 Year
  Sex: Male
  Weight: 76.4 kg

DRUGS (2)
  1. CUROSURF [Suspect]
     Active Substance: PORACTANT ALFA
     Indication: Acute respiratory distress syndrome
     Dosage: 53 MILLILITER, (1X)
     Route: 007
     Dates: start: 20211019, end: 20211019
  2. CUROSURF [Suspect]
     Active Substance: PORACTANT ALFA
     Dosage: 53 MILLILITER, (1X)
     Route: 007
     Dates: start: 20211020, end: 20211020

REACTIONS (2)
  - Hypotension [Recovered/Resolved]
  - Hypoxia [Recovered/Resolved]

NARRATIVE: CASE EVENT DATE: 20211019
